FAERS Safety Report 18089340 (Version 1)
Quarter: 2020Q3

REPORT INFORMATION
  Report Type: Spontaneous
  Country: PL (occurrence: PL)
  Receive Date: 20200730
  Receipt Date: 20200730
  Transmission Date: 20201103
  Serious: Yes (Death, Other)
  Sender: FDA-Public Use
  Company Number: PL-SUN PHARMACEUTICAL INDUSTRIES LTD-2020R1-254426

PATIENT
  Age: 68 Year
  Sex: Female

DRUGS (3)
  1. ETOPOSIDE. [Suspect]
     Active Substance: ETOPOSIDE
     Indication: SMALL CELL LUNG CANCER
     Dosage: 120 MILLIGRAM/SQ. METER
     Route: 065
     Dates: start: 201804
  2. CARBOPLATIN. [Suspect]
     Active Substance: CARBOPLATIN
     Indication: SMALL CELL LUNG CANCER
     Dosage: UNK
     Route: 065
     Dates: start: 201804
  3. ATEZOLIZUMAB. [Suspect]
     Active Substance: ATEZOLIZUMAB
     Indication: SMALL CELL LUNG CANCER
     Dosage: 120 MILLIGRAM, EVERY 3 WEEKS
     Route: 042
     Dates: start: 201804

REACTIONS (7)
  - Anxiety [Unknown]
  - Death [Fatal]
  - Anaemia [Unknown]
  - Vomiting [Unknown]
  - Disease progression [Unknown]
  - Neutropenia [Unknown]
  - Condition aggravated [Unknown]
